FAERS Safety Report 5042022-6 (Version None)
Quarter: 2006Q2

REPORT INFORMATION
  Report Type: 
  Country: None (occurrence: None)
  Receive Date: 20060630
  Receipt Date: 20060217
  Transmission Date: 20061013
  Serious: Yes (Life-Threatening)
  Sender: FDA-Public Use
  Company Number: 2006ADE/NIFED-011

PATIENT
  Age: 24 Year
  Sex: Female

DRUGS (2)
  1. NIFEDIPINE [Suspect]
     Indication: TOCOLYSIS
     Dosage: 30MG, ORAL
     Route: 048
  2. NIFEDIPINE 20MG [Suspect]
     Dosage: 20MG X 3, 48 HRS., ORAL
     Route: 048

REACTIONS (11)
  - BLOOD PRESSURE DECREASED [None]
  - DIZZINESS [None]
  - DRUG EXPOSURE DURING PREGNANCY [None]
  - FLUSHING [None]
  - HEADACHE [None]
  - HEART RATE INCREASED [None]
  - NAUSEA [None]
  - OBSTETRIC PROCEDURE COMPLICATION [None]
  - PALPITATIONS [None]
  - VISUAL DISTURBANCE [None]
  - VOMITING [None]
